FAERS Safety Report 7826019-6 (Version None)
Quarter: 2011Q4

REPORT INFORMATION
  Report Type: 
  Country: None (occurrence: None)
  Receive Date: 20111019
  Receipt Date: 20111012
  Transmission Date: 20120403
  Serious: Yes (Hospitalization)
  Sender: FDA-Public Use
  Company Number: FR-MERCK-1110USA02045

PATIENT
  Age: 19 Month
  Sex: Male

DRUGS (2)
  1. CANCIDAS [Suspect]
     Route: 042
     Dates: start: 20110728
  2. CANCIDAS [Suspect]
     Route: 042

REACTIONS (3)
  - URTICARIA [None]
  - HYPOTENSION [None]
  - PRURITUS [None]
